FAERS Safety Report 7971155-7 (Version None)
Quarter: 2011Q4

REPORT INFORMATION
  Report Type: 
  Country: None (occurrence: None)
  Receive Date: 20111122
  Receipt Date: 20110815
  Transmission Date: 20120403
  Serious: No
  Sender: FDA-Public Use
  Company Number: PHEH2011US01739

PATIENT
  Age: 45 Year
  Sex: Female
  Weight: 72.6 kg

DRUGS (5)
  1. GILENYA [Suspect]
     Dosage: 0.5 MG,ONE CAPSULE EVERY DAY, ORAL
     Route: 048
     Dates: start: 20110501
  2. HYZAAR (HYDROCHLOROTHAZIDE, LOSARTAN POTASSIUM) TABLET [Concomitant]
  3. ESTRADERM [Concomitant]
  4. VITAMIN D [Concomitant]
  5. RITALIN [Concomitant]

REACTIONS (2)
  - CHEST DISCOMFORT [None]
  - DYSPNOEA [None]
